FAERS Safety Report 10184954 (Version 2)
Quarter: 2014Q3

REPORT INFORMATION
  Report Type: Spontaneous
  Country: US (occurrence: None)
  Receive Date: 20140519
  Receipt Date: 20140806
  Transmission Date: 20150326
  Serious: Yes (Hospitalization, Disabling)
  Sender: FDA-Public Use
  Company Number: UTC-047889

PATIENT
  Age: 12 Year
  Sex: Male

DRUGS (5)
  1. VELETRI (EPOPROSTENOL SODIUM) [Concomitant]
     Active Substance: EPOPROSTENOL SODIUM
  2. REVATIO (SILDENAFIL CITRATE) [Concomitant]
  3. WARFARIN (WARFARIN) [Concomitant]
     Active Substance: WARFARIN
  4. TRACLEER [Concomitant]
     Active Substance: BOSENTAN\BOSENTAN MONOHYDRATE
  5. REMODULIN [Suspect]
     Active Substance: TREPROSTINIL
     Indication: PULMONARY ARTERIAL HYPERTENSION
     Dates: start: 201112, end: 20140417

REACTIONS (3)
  - Pulmonary arterial hypertension [None]
  - Condition aggravated [None]
  - Right ventricular failure [None]

NARRATIVE: CASE EVENT DATE: 20140417
